FAERS Safety Report 5256079-0 (Version None)
Quarter: 2007Q2

REPORT INFORMATION
  Report Type: 
  Country: None (occurrence: None)
  Receive Date: 20070301
  Receipt Date: 20070215
  Transmission Date: 20071010
  Serious: Yes (Disabling)
  Sender: FDA-Public Use
  Company Number: 2007RR-05141

PATIENT
  Age: 58 Year
  Sex: Male
  Weight: 70 kg

DRUGS (2)
  1. AMOXICILLIN AND CLAVULANATE POTASSIUM [Suspect]
     Indication: PNEUMONIA
     Dosage: 250 MG, TID, ORAL
     Route: 048
     Dates: start: 20060804, end: 20060811
  2. SILYBUM MARIANUM [Suspect]
     Dosage: 250 MG, BID, ORAL
     Route: 048
     Dates: start: 20060804, end: 20060901

REACTIONS (2)
  - DRUG INTERACTION [None]
  - IRON DEFICIENCY ANAEMIA [None]
